FAERS Safety Report 14829926 (Version 2)
Quarter: 2018Q2

REPORT INFORMATION
  Report Type: Spontaneous
  Country: JP (occurrence: JP)
  Receive Date: 20180430
  Receipt Date: 20180530
  Transmission Date: 20180711
  Serious: Yes (Hospitalization, Other)
  Sender: FDA-Public Use
  Company Number: JP-PFIZER INC-2018170593

PATIENT
  Age: 49 Year
  Sex: Female
  Weight: 47.4 kg

DRUGS (8)
  1. IBRANCE [Suspect]
     Active Substance: PALBOCICLIB
     Indication: BREAST CANCER RECURRENT
     Dosage: 125 MG, 1X/DAY
     Route: 048
     Dates: start: 20180216, end: 20180308
  2. IBRANCE [Suspect]
     Active Substance: PALBOCICLIB
     Dosage: 125 MG, 1X/DAY
     Route: 048
     Dates: start: 20180316, end: 20180329
  3. EXEMESTANE. [Concomitant]
     Active Substance: EXEMESTANE
     Indication: BREAST CANCER RECURRENT
     Dosage: 25 MG, 1X/DAY
     Route: 048
     Dates: start: 20180216
  4. HIBON [Concomitant]
     Active Substance: RIBOFLAVIN
     Indication: PROPHYLAXIS
     Dosage: 20 MG, 1X/DAY
     Route: 048
     Dates: start: 20180216
  5. LOXOPROFEN [Concomitant]
     Active Substance: LOXOPROFEN
     Indication: TUMOUR PAIN
     Dosage: 60 MG, 3X/DAY
     Route: 048
     Dates: start: 20141205
  6. REBAMIPIDE [Concomitant]
     Active Substance: REBAMIPIDE
     Indication: TUMOUR PAIN
     Dosage: 100 MG, 3X/DAY
     Route: 048
     Dates: start: 20141205
  7. THIURAGYL [Concomitant]
     Active Substance: PROPYLTHIOURACIL
     Indication: BASEDOW^S DISEASE
     Dosage: 100 MG, 1X/DAY
     Route: 048
  8. TOKISHAKUYAKUSAN /08000701/ [Concomitant]
     Active Substance: HERBALS
     Dosage: 2.5 G, 3X/DAY
     Route: 048

REACTIONS (3)
  - Anaemia [Recovering/Resolving]
  - Bone marrow failure [Recovering/Resolving]
  - Platelet count decreased [Recovering/Resolving]

NARRATIVE: CASE EVENT DATE: 20180316
